FAERS Safety Report 5974910-8 (Version None)
Quarter: 2008Q4

REPORT INFORMATION
  Report Type: 
  Country: None (occurrence: None)
  Receive Date: 20081202
  Receipt Date: 20081125
  Transmission Date: 20090506
  Serious: Yes (Other)
  Sender: FDA-Public Use
  Company Number: GB-PFIZER INC-2008100028

PATIENT
  Age: 76 Year
  Sex: Male

DRUGS (9)
  1. AMLODIPINE [Suspect]
  2. THEOPHYLLINE [Suspect]
  3. VENTOLIN [Suspect]
     Indication: ASTHMA
     Route: 055
  4. SERETIDE [Suspect]
     Indication: ASTHMA
     Dosage: FREQ:EVERY DAY
     Route: 055
     Dates: start: 20051208
  5. SIMVASTATIN [Suspect]
  6. TAMSULOSIN HCL [Suspect]
  7. OMEPRAZOLE [Suspect]
  8. TIOTROPIUM BROMIDE [Suspect]
     Dosage: TEXT:1 DOSE FORM
  9. RAMIPRIL [Suspect]

REACTIONS (4)
  - ASTHMA [None]
  - DYSPNOEA [None]
  - MEMORY IMPAIRMENT [None]
  - TRANSIENT ISCHAEMIC ATTACK [None]
